FAERS Safety Report 9671426 (Version 1)
Quarter: 2013Q4

REPORT INFORMATION
  Report Type: Spontaneous
  Country: US (occurrence: None)
  Receive Date: 20131105
  Receipt Date: 20131105
  Transmission Date: 20140711
  Serious: No
  Sender: FDA-Public Use
  Company Number: None

PATIENT
  Age: 58 Year
  Sex: Female
  Weight: 81.65 kg

DRUGS (4)
  1. FLAGYL / METRONIDAZOLE 500MG MYLAN [Suspect]
     Indication: ABDOMINAL ABSCESS
     Route: 048
  2. FLAGYL / METRONIDAZOLE 500MG MYLAN [Suspect]
     Indication: DIVERTICULAR PERFORATION
     Route: 048
  3. LEVAQUIN / LEVOFLOXACIN 500MG MAJOR [Suspect]
     Indication: ABDOMINAL ABSCESS
     Route: 048
  4. LEVAQUIN / LEVOFLOXACIN 500MG MAJOR [Suspect]
     Indication: DIVERTICULAR PERFORATION
     Route: 048

REACTIONS (9)
  - Dizziness [None]
  - Pruritus [None]
  - Hypoaesthesia [None]
  - Paraesthesia [None]
  - Vision blurred [None]
  - Oropharyngeal pain [None]
  - Swelling face [None]
  - Pharyngeal oedema [None]
  - Swollen tongue [None]
